FAERS Safety Report 9495026 (Version 2)
Quarter: 2013Q4

REPORT INFORMATION
  Report Type: Report from Study
  Country: JP (occurrence: JP)
  Receive Date: 20130903
  Receipt Date: 20131018
  Transmission Date: 20140711
  Serious: Yes (Death, Hospitalization)
  Sender: FDA-Public Use
  Company Number: JP-ROCHE-1268640

PATIENT
  Age: 57 Year
  Sex: Male
  Weight: 57 kg

DRUGS (11)
  1. METHOXY POLYETHYLENE GLYCOL-EPOETIN BETA [Suspect]
     Indication: NEPHROGENIC ANAEMIA
     Route: 042
     Dates: start: 20110909, end: 20111209
  2. LEVEMIR [Suspect]
     Indication: PRODUCT USED FOR UNKNOWN INDICATION
     Route: 058
  3. NOVORAPID [Suspect]
     Indication: PRODUCT USED FOR UNKNOWN INDICATION
     Route: 058
  4. FESIN (JAPAN) [Concomitant]
     Dosage: MONEY/WEEK
     Route: 042
     Dates: start: 20110831, end: 20111104
  5. TENORMIN [Concomitant]
     Route: 048
  6. DEPAKENE-R [Concomitant]
     Route: 048
  7. ROCALTROL [Concomitant]
     Route: 048
  8. CARDENALIN [Concomitant]
     Route: 048
  9. EXFORGE [Concomitant]
     Route: 048
  10. FAMOTIDINE D [Concomitant]
     Route: 048
  11. EURODIN [Concomitant]
     Route: 048

REACTIONS (3)
  - Drowning [Fatal]
  - Radius fracture [Recovered/Resolved]
  - Ulna fracture [Recovered/Resolved]
